FAERS Safety Report 6677316-1 (Version None)
Quarter: 2010Q2

REPORT INFORMATION
  Report Type: 
  Country: None (occurrence: None)
  Receive Date: 20100408
  Receipt Date: 20100408
  Transmission Date: 20101027
  Serious: No
  Sender: FDA-Public Use
  Company Number: None

PATIENT
  Sex: Male
  Weight: 56 kg

DRUGS (7)
  1. ISOVUE-300 [Suspect]
     Indication: COMPUTERISED TOMOGRAM
     Dosage: 100 ML IV X1
     Route: 042
     Dates: start: 20100111
  2. KETOROLAC TROMETHAMINE [Concomitant]
  3. ACETAMINOPHEN [Concomitant]
  4. CIPRO [Concomitant]
  5. MICARDIS [Concomitant]
  6. HUMALOG [Concomitant]
  7. LANTUS [Concomitant]

REACTIONS (2)
  - DYSPNOEA [None]
  - PHARYNGEAL OEDEMA [None]
